FAERS Safety Report 16524908 (Version 1)
Quarter: 2019Q3

REPORT INFORMATION
  Report Type: Spontaneous
  Country: BR (occurrence: BR)
  Receive Date: 20190703
  Receipt Date: 20190703
  Transmission Date: 20191004
  Serious: Yes (Other)
  Sender: FDA-Public Use
  Company Number: BR-PFIZER INC-2019279710

PATIENT
  Age: 66 Year
  Sex: Female

DRUGS (1)
  1. LIPITOR [Suspect]
     Active Substance: ATORVASTATIN CALCIUM
     Dosage: UNK
     Dates: start: 20110430, end: 2017

REACTIONS (4)
  - Bedridden [Unknown]
  - Dementia Alzheimer^s type [Unknown]
  - Lung disorder [Unknown]
  - Thrombosis [Unknown]

NARRATIVE: CASE EVENT DATE: 2013
